FAERS Safety Report 12449303 (Version 2)
Quarter: 2016Q2

REPORT INFORMATION
  Report Type: Spontaneous
  Country: DE (occurrence: DE)
  Receive Date: 20160608
  Receipt Date: 20160628
  Transmission Date: 20160815
  Serious: Yes (Hospitalization)
  Sender: FDA-Public Use
  Company Number: DE-ELI_LILLY_AND_COMPANY-DE201605011073

PATIENT
  Age: 59 Year
  Sex: Male

DRUGS (3)
  1. TESTOGEL [Concomitant]
     Active Substance: TESTOSTERONE
  2. CIALIS [Suspect]
     Active Substance: TADALAFIL
     Indication: ERECTILE DYSFUNCTION
     Dosage: 5 MG, TWO-THREE TIMES A WEEK
     Route: 048
     Dates: start: 201501
  3. VALSARTAN. [Concomitant]
     Active Substance: VALSARTAN
     Dosage: 80 MG, UNKNOWN

REACTIONS (2)
  - Retinal detachment [Recovered/Resolved]
  - Blepharospasm [Unknown]
